FAERS Safety Report 17217042 (Version 1)
Quarter: 2019Q4

REPORT INFORMATION
  Report Type: Spontaneous
  Country: US (occurrence: US)
  Receive Date: 20191231
  Receipt Date: 20191231
  Transmission Date: 20200122
  Serious: No
  Sender: FDA-Public Use
  Company Number: US-TEVA-2019-US-1161077

PATIENT

DRUGS (1)
  1. AMOXICILLIN W/CLAVULANIC ACID [Suspect]
     Active Substance: AMOXICILLIN\CLAVULANIC ACID
     Dosage: DOSE: 875 MG
     Route: 065

REACTIONS (4)
  - Tendon pain [Unknown]
  - Pain in extremity [Unknown]
  - Arthralgia [Unknown]
  - Gait inability [Unknown]
